FAERS Safety Report 6417417-6 (Version None)
Quarter: 2009Q4

REPORT INFORMATION
  Report Type: 
  Country: None (occurrence: None)
  Receive Date: 20091028
  Receipt Date: 20091015
  Transmission Date: 20100525
  Serious: Yes (Other)
  Sender: FDA-Public Use
  Company Number: NO-BAYER-200924930GPV

PATIENT
  Age: 35 Year
  Sex: Female

DRUGS (2)
  1. MIRENA [Suspect]
     Indication: DRUG USE FOR UNKNOWN INDICATION
     Route: 015
     Dates: start: 20030101
  2. MIRENA [Suspect]
     Route: 015
     Dates: start: 20090701, end: 20090701

REACTIONS (5)
  - COMPLICATION OF DEVICE INSERTION [None]
  - MEDICAL DEVICE COMPLICATION [None]
  - POST PROCEDURAL DISCOMFORT [None]
  - PROCEDURAL PAIN [None]
  - SYNCOPE [None]
